FAERS Safety Report 5096099-2 (Version None)
Quarter: 2006Q3

REPORT INFORMATION
  Report Type: 
  Country: None (occurrence: None)
  Receive Date: 20060905
  Receipt Date: 20060823
  Transmission Date: 20061208
  Serious: Yes (Death)
  Sender: FDA-Public Use
  Company Number: FR-GILEAD-2006-0010102

PATIENT
  Age: 18 Month
  Sex: Female

DRUGS (1)
  1. DAUNOXOME [Suspect]
     Indication: ACUTE LEUKAEMIA

REACTIONS (8)
  - ACCIDENTAL OVERDOSE [None]
  - CARDIAC DISORDER [None]
  - CHILLS [None]
  - DRUG ADMINISTRATION ERROR [None]
  - PAIN [None]
  - PROSTRATION [None]
  - RESPIRATORY DISTRESS [None]
  - VOMITING [None]
